FAERS Safety Report 13247814 (Version 3)
Quarter: 2017Q2

REPORT INFORMATION
  Report Type: Spontaneous
  Country: BR (occurrence: BR)
  Receive Date: 20170217
  Receipt Date: 20170420
  Transmission Date: 20170830
  Serious: Yes (Hospitalization, Other)
  Sender: FDA-Public Use
  Company Number: BR-ELI_LILLY_AND_COMPANY-BR201702003652

PATIENT
  Age: 67 Year
  Sex: Female
  Weight: 82 kg

DRUGS (7)
  1. HUMALOG [Suspect]
     Active Substance: INSULIN LISPRO
     Indication: DIABETES MELLITUS
     Dosage: UNK, OTHER
     Route: 058
  2. LUMIGAN [Concomitant]
     Active Substance: BIMATOPROST
     Indication: GLAUCOMA
     Dosage: UNK, UNKNOWN
     Route: 065
  3. LANTUS [Concomitant]
     Active Substance: INSULIN GLARGINE
     Dosage: UNK, UNKNOWN
     Route: 065
  4. CYMBALTA [Suspect]
     Active Substance: DULOXETINE HYDROCHLORIDE
     Indication: DEPRESSION
     Dosage: UNK, UNKNOWN
     Route: 065
  5. CLORTALIDONA [Concomitant]
     Active Substance: CHLORTHALIDONE
     Dosage: UNK, UNKNOWN
     Route: 065
  6. LOSARTANA POTASSICA [Concomitant]
     Active Substance: LOSARTAN
     Dosage: UNK, UNKNOWN
     Route: 065
  7. METFORMIN [Concomitant]
     Active Substance: METFORMIN HYDROCHLORIDE
     Dosage: UNK, UNKNOWN
     Route: 065

REACTIONS (13)
  - Urinary tract infection [Unknown]
  - Abdominal pain [Unknown]
  - Abdominal distension [Not Recovered/Not Resolved]
  - Blood glucose increased [Unknown]
  - Hepatic steatosis [Unknown]
  - Osteoarthritis [Unknown]
  - Carpal tunnel syndrome [Unknown]
  - Injection site nodule [Not Recovered/Not Resolved]
  - Parkinson^s disease [Unknown]
  - Diabetic retinopathy [Unknown]
  - Memory impairment [Unknown]
  - Urinary tract infection [Unknown]
  - Injection site injury [Not Recovered/Not Resolved]

NARRATIVE: CASE EVENT DATE: 2012
